FAERS Safety Report 7885681-2 (Version None)
Quarter: 2011Q4

REPORT INFORMATION
  Report Type: 
  Country: None (occurrence: None)
  Receive Date: 20111102
  Receipt Date: 20111024
  Transmission Date: 20120403
  Serious: Yes (Other)
  Sender: FDA-Public Use
  Company Number: US-ASTRAZENECA-2010SE51708

PATIENT
  Age: 89 Year
  Sex: Female
  Weight: 93 kg

DRUGS (4)
  1. LOTREL [Concomitant]
     Dosage: 5/20 MG
  2. PREDNISONE [Concomitant]
  3. SYNTHROID [Concomitant]
  4. NEXIUM [Suspect]
     Indication: GASTROOESOPHAGEAL REFLUX PROPHYLAXIS
     Route: 048
     Dates: start: 20040101

REACTIONS (8)
  - WRIST FRACTURE [None]
  - FEELING ABNORMAL [None]
  - FALL [None]
  - DYSPHONIA [None]
  - BLOOD GLUCOSE INCREASED [None]
  - NEUROPATHY PERIPHERAL [None]
  - THYROID DISORDER [None]
  - OSTEOPOROSIS [None]
